FAERS Safety Report 15135891 (Version 1)
Quarter: 2018Q3

REPORT INFORMATION
  Report Type: Report from Study
  Country: US (occurrence: US)
  Receive Date: 20180712
  Receipt Date: 20180712
  Transmission Date: 20181010
  Serious: Yes (Hospitalization)
  Sender: FDA-Public Use
  Company Number: US-SA-2018SA015804

PATIENT
  Age: 73 Year
  Sex: Female
  Weight: 64 kg

DRUGS (21)
  1. BLINDED NO STUDY DRUG GIVEN [Suspect]
     Active Substance: INVESTIGATIONAL PRODUCT
     Indication: DIABETES MELLITUS
     Dosage: UNK UNK,AC
     Route: 058
     Dates: start: 20171026
  2. BLINDED SAR341402 [Suspect]
     Active Substance: INSULIN ASPART
     Indication: DIABETES MELLITUS
     Dosage: UNK UNK,AC
     Route: 058
     Dates: start: 20171026
  3. BLINDED SAR341402 [Suspect]
     Active Substance: INSULIN ASPART
     Indication: DIABETES MELLITUS
     Dosage: UNK UNK,AC
     Route: 058
     Dates: start: 20171026
  4. SYNTHROID [Concomitant]
     Active Substance: LEVOTHYROXINE SODIUM
     Indication: PRIMARY HYPOTHYROIDISM
     Dosage: UNK UNK,UNK
     Route: 048
     Dates: start: 20121009
  5. BLINDED INSULIN ASPART [Suspect]
     Active Substance: INSULIN ASPART
     Indication: DIABETES MELLITUS
     Dosage: UNK UNK,AC
     Route: 058
     Dates: start: 20171026
  6. BLINDED JP_INSULIN ASPART [Suspect]
     Active Substance: INSULIN ASPART
     Indication: DIABETES MELLITUS
     Dosage: UNK UNK,AC
     Route: 058
     Dates: start: 20171026
  7. URSODIOL. [Concomitant]
     Active Substance: URSODIOL
     Indication: PRIMARY BILIARY CHOLANGITIS
     Dosage: UNK UNK,UNK
     Route: 048
     Dates: start: 2016
  8. SULINDAC. [Concomitant]
     Active Substance: SULINDAC
     Indication: RHEUMATOID ARTHRITIS
     Dosage: UNK UNK,UNK
     Route: 048
     Dates: start: 1991
  9. ARAVA [Concomitant]
     Active Substance: LEFLUNOMIDE
     Indication: RHEUMATOID ARTHRITIS
     Dosage: UNK UNK,UNK
     Route: 048
     Dates: start: 1991
  10. INSULIN GLARGINE [Suspect]
     Active Substance: INSULIN GLARGINE
     Indication: DIABETES MELLITUS
     Dosage: UNK UNK,UNK
     Route: 058
     Dates: start: 201709, end: 20171025
  11. INSULIN GLARGINE [Suspect]
     Active Substance: INSULIN GLARGINE
     Dosage: UNK, UNK
     Route: 058
     Dates: start: 20171026
  12. OMEPRAZOLE. [Concomitant]
     Active Substance: OMEPRAZOLE
     Indication: GASTROOESOPHAGEAL REFLUX DISEASE
     Dosage: UNK UNK,UNK
     Route: 048
     Dates: start: 2002
  13. BYSTOLIC [Concomitant]
     Active Substance: NEBIVOLOL HYDROCHLORIDE
     Indication: HYPERTENSION
     Dosage: UNK UNK,UNK
     Route: 048
     Dates: start: 2010
  14. ACETYLSALICYLIC ACID [Concomitant]
     Active Substance: ASPIRIN
     Indication: PROPHYLAXIS
     Dosage: UNK UNK,UNK
     Route: 048
     Dates: start: 2008
  15. FUROSEMIDE. [Concomitant]
     Active Substance: FUROSEMIDE
     Dosage: UNK UNK,UNK
     Route: 048
     Dates: start: 20171117
  16. HYDROXYCHLOROQUINE [Concomitant]
     Active Substance: HYDROXYCHLOROQUINE
     Indication: RHEUMATOID ARTHRITIS
     Dosage: UNK UNK,UNK
     Route: 048
     Dates: start: 201106
  17. MOMETASONE FUROATE. [Concomitant]
     Active Substance: MOMETASONE FUROATE
     Indication: SINUS DISORDER
     Dosage: UNK UNK,UNK
     Route: 061
     Dates: start: 201706
  18. ANORO ELLIPTA [Concomitant]
     Active Substance: UMECLIDINIUM BROMIDE\VILANTEROL TRIFENATATE
     Dosage: UNK UNK,UNK
     Route: 055
     Dates: start: 201706
  19. LOSARTAN. [Concomitant]
     Active Substance: LOSARTAN
     Indication: HYPERTENSION
     Dosage: UNK UNK,QD
     Route: 048
     Dates: start: 2007
  20. ISOSORBIDE. [Concomitant]
     Active Substance: ISOSORBIDE
     Indication: CORONARY ARTERY DISEASE
     Dosage: UNK UNK,UNK
     Route: 048
     Dates: start: 2008
  21. ESTRACE [Concomitant]
     Active Substance: ESTRADIOL
     Indication: PROPHYLAXIS
     Dosage: UNK UNK,UNK
     Route: 061
     Dates: start: 2014

REACTIONS (11)
  - Cellulitis [Not Recovered/Not Resolved]
  - Impaired healing [None]
  - Arteriosclerosis [None]
  - Refusal of treatment by patient [None]
  - Infected skin ulcer [None]
  - Neutrophil count increased [None]
  - Blood pressure systolic increased [None]
  - Multiple organ dysfunction syndrome [None]
  - Vascular calcification [None]
  - Wound infection [None]
  - Gastroenteritis [None]

NARRATIVE: CASE EVENT DATE: 201712
